FAERS Safety Report 7379586-3 (Version None)
Quarter: 2011Q1

REPORT INFORMATION
  Report Type: 
  Country: None (occurrence: None)
  Receive Date: 20110329
  Receipt Date: 20081209
  Transmission Date: 20110831
  Serious: No
  Sender: FDA-Public Use
  Company Number: 2008BI033617

PATIENT
  Sex: Female

DRUGS (6)
  1. BETASERON [Concomitant]
     Indication: MULTIPLE SCLEROSIS
  2. REBIF [Concomitant]
     Indication: MULTIPLE SCLEROSIS
  3. TYSABRI [Suspect]
     Indication: MULTIPLE SCLEROSIS
     Route: 042
     Dates: start: 20071121, end: 20090629
  4. AMPYRA [Concomitant]
  5. AVONEX [Concomitant]
     Indication: MULTIPLE SCLEROSIS
     Route: 030
  6. COPAXONE [Concomitant]
     Indication: MULTIPLE SCLEROSIS

REACTIONS (11)
  - FALL [None]
  - VISUAL IMPAIRMENT [None]
  - HYPOACUSIS [None]
  - MULTIPLE SCLEROSIS [None]
  - HYPOAESTHESIA [None]
  - CATARACT [None]
  - MUSCULOSKELETAL DISORDER [None]
  - PAIN [None]
  - PERONEAL NERVE PALSY [None]
  - GAIT DISTURBANCE [None]
  - MULTIPLE SCLEROSIS RELAPSE [None]
